FAERS Safety Report 5713570-8 (Version None)
Quarter: 2008Q2

REPORT INFORMATION
  Report Type: 
  Country: None (occurrence: None)
  Receive Date: 20080418
  Receipt Date: 20080411
  Transmission Date: 20081010
  Serious: Yes (Hospitalization)
  Sender: FDA-Public Use
  Company Number: JPI-P-003388

PATIENT
  Age: 51 Year
  Sex: Female

DRUGS (2)
  1. XYREM [Suspect]
     Indication: NARCOLEPSY
     Dosage: ORAL, 7.5 CM (3.75 GM, 2 IN 1 D), ORAL
     Route: 048
     Dates: start: 20080301, end: 20080301
  2. XYREM [Suspect]
     Indication: NARCOLEPSY
     Dosage: ORAL, 7.5 CM (3.75 GM, 2 IN 1 D), ORAL
     Route: 048
     Dates: start: 20080318, end: 20080401

REACTIONS (6)
  - BIPOLAR I DISORDER [None]
  - DELUSION [None]
  - INSOMNIA [None]
  - MENTAL DISORDER [None]
  - MENTAL STATUS CHANGES [None]
  - PARANOIA [None]
